FAERS Safety Report 16166259 (Version 1)
Quarter: 2019Q2

REPORT INFORMATION
  Report Type: Spontaneous
  Country: US (occurrence: US)
  Receive Date: 20190406
  Receipt Date: 20190406
  Transmission Date: 20190711
  Serious: Yes (Other)
  Sender: FDA-Public Use
  Company Number: US-TOLMAR, INC.-TOLG20192199

PATIENT
  Age: 75 Year
  Sex: Male

DRUGS (9)
  1. FAMCICLOVIR. [Suspect]
     Active Substance: FAMCICLOVIR
     Indication: OPHTHALMIC HERPES SIMPLEX
     Dosage: REPLACED ACYCLOVIR; 500 MG 3/D, WITH TOPICAL GANCICLOVIR
     Route: 048
  2. ACYCLOVIR. [Suspect]
     Active Substance: ACYCLOVIR
     Dosage: CHANGED TO 400 MG 3/D, WITH TOPICAL GANCICLOVIR X 15 D
     Route: 048
  3. ACYCLOVIR. [Suspect]
     Active Substance: ACYCLOVIR
     Dosage: INCREASED TO 800 MG 5/D, WITH TOPICAL GANCICLOVIR 5/D
     Route: 048
  4. ACYCLOVIR. [Suspect]
     Active Substance: ACYCLOVIR
     Indication: OPHTHALMIC HERPES SIMPLEX
     Dosage: INITIATED AT 400 MG 5/D, WITH TOPICAL MOXIFLOXACIN
     Route: 048
  5. ACYCLOVIR. [Suspect]
     Active Substance: ACYCLOVIR
     Dosage: INCREASED TO 400 MG 5/D, WITH TOPICAL GANCICLOVIR 5/D
     Route: 048
  6. MOXIFLOXACIN. [Concomitant]
     Active Substance: MOXIFLOXACIN
     Indication: ULCERATIVE KERATITIS
     Dosage: UNKNOWN
     Route: 047
  7. GANCICLOVIR. [Concomitant]
     Active Substance: GANCICLOVIR
     Indication: OPHTHALMIC HERPES SIMPLEX
     Dosage: UNKNOWN
     Route: 047
  8. GANCICLOVIR. [Concomitant]
     Active Substance: GANCICLOVIR
     Dosage: INCREASED TO 5/D WITH EACH RECURRENCE
     Route: 047
  9. GANCICLOVIR. [Concomitant]
     Active Substance: GANCICLOVIR
     Dosage: UNKNOWN
     Route: 047

REACTIONS (4)
  - Ophthalmic herpes simplex [Recovered/Resolved]
  - Drug resistance [Recovered/Resolved]
  - Pathogen resistance [Recovered/Resolved]
  - Treatment failure [Recovered/Resolved]
